FAERS Safety Report 5413025-4 (Version None)
Quarter: 2007Q3

REPORT INFORMATION
  Report Type: 
  Country: None (occurrence: None)
  Receive Date: 20070730
  Receipt Date: 20070727
  Transmission Date: 20080115
  Serious: Yes (Other)
  Sender: FDA-Public Use
  Company Number: AEJPN200700160

PATIENT

DRUGS (1)
  1. POLYGLOBIN N (IMMUNOGLOBULIN) [Suspect]
     Indication: LEUKAEMIA
     Dosage: IV
     Route: 042

REACTIONS (1)
  - VARICELLA ZOSTER VIRUS SEROLOGY POSITIVE [None]
